FAERS Safety Report 14923104 (Version 2)
Quarter: 2018Q2

REPORT INFORMATION
  Report Type: Report from Study
  Country: CA (occurrence: CA)
  Receive Date: 20180522
  Receipt Date: 20180619
  Transmission Date: 20180711
  Serious: Yes (Other)
  Sender: FDA-Public Use
  Company Number: PHHY2016CA151379

PATIENT
  Age: 54 Year
  Sex: Male

DRUGS (2)
  1. SANDOSTATIN LAR DEPOT [Suspect]
     Active Substance: OCTREOTIDE ACETATE
     Indication: NEUROENDOCRINE TUMOUR
     Dosage: 30 MG, QMO (EVERY 4 WEEKS)
     Route: 030
     Dates: start: 20161003, end: 20170123
  2. SANDOSTATIN LAR DEPOT [Suspect]
     Active Substance: OCTREOTIDE ACETATE
     Indication: CARCINOID TUMOUR
     Dosage: 40 MG, QMO (EVERY 4 WEEKS)
     Route: 030
     Dates: start: 20170220

REACTIONS (24)
  - Heart rate increased [Unknown]
  - Injection site pain [Unknown]
  - Needle issue [Unknown]
  - Acute sinusitis [Not Recovered/Not Resolved]
  - Blood pressure increased [Unknown]
  - Body temperature decreased [Unknown]
  - Faeces discoloured [Unknown]
  - Injection site hypersensitivity [Recovered/Resolved]
  - Chronic sinusitis [Unknown]
  - Bowel movement irregularity [Recovered/Resolved]
  - Diarrhoea [Unknown]
  - Injection site discomfort [Recovered/Resolved]
  - Dyspepsia [Unknown]
  - Hepatic congestion [Unknown]
  - Eustachian tube obstruction [Unknown]
  - Fatigue [Not Recovered/Not Resolved]
  - Flatulence [Unknown]
  - Malignant neoplasm progression [Unknown]
  - Tendonitis [Unknown]
  - Feeling abnormal [Unknown]
  - Injection site hypersensitivity [Unknown]
  - Somnolence [Unknown]
  - Diverticulitis [Unknown]
  - Blood pressure systolic decreased [Unknown]

NARRATIVE: CASE EVENT DATE: 2016
